FAERS Safety Report 22227018 (Version 1)
Quarter: 2023Q2

REPORT INFORMATION
  Report Type: Spontaneous
  Country: DE (occurrence: None)
  Receive Date: 20230419
  Receipt Date: 20230419
  Transmission Date: 20230721
  Serious: Yes (Hospitalization)
  Sender: FDA-Public Use
  Company Number: 2023A083655

PATIENT
  Age: 47 Year
  Sex: Female
  Weight: 59 kg

DRUGS (1)
  1. FASENRA [Suspect]
     Active Substance: BENRALIZUMAB
     Indication: Asthma
     Dosage: 30 MG
     Route: 058
     Dates: start: 20230328, end: 20230328

REACTIONS (3)
  - Dyspnoea [Recovered/Resolved]
  - Anaphylactic reaction [Recovered/Resolved]
  - Rash [Recovered/Resolved]

NARRATIVE: CASE EVENT DATE: 20230328
